FAERS Safety Report 6346844-0 (Version None)
Quarter: 2009Q3

REPORT INFORMATION
  Report Type: 
  Country: None (occurrence: None)
  Receive Date: 20090910
  Receipt Date: 20090831
  Transmission Date: 20100115
  Serious: Yes (Hospitalization)
  Sender: FDA-Public Use
  Company Number: US-BIOGENIDEC-2009BI025907

PATIENT
  Age: 48 Year
  Sex: Female

DRUGS (1)
  1. AVONEX [Suspect]
     Indication: MULTIPLE SCLEROSIS
     Route: 030
     Dates: start: 20040601

REACTIONS (6)
  - BLOOD PRESSURE ABNORMAL [None]
  - BRAIN HYPOXIA [None]
  - DISORIENTATION [None]
  - DYSPNOEA [None]
  - OEDEMA PERIPHERAL [None]
  - PNEUMONIA [None]
